FAERS Safety Report 4387174-6 (Version None)
Quarter: 2004Q2

REPORT INFORMATION
  Report Type: 
  Country: None (occurrence: None)
  Receive Date: 20040625
  Receipt Date: 20040618
  Transmission Date: 20050107
  Serious: Yes (Other)
  Sender: FDA-Public Use
  Company Number: 2004040894

PATIENT
  Age: 61 Year
  Sex: Male

DRUGS (7)
  1. LIPITOR [Suspect]
     Indication: HYPERLIPIDAEMIA
     Dosage: 20 MG (20 MG, 1 IN 1 D), ORAL
     Route: 048
     Dates: start: 20011201, end: 20030601
  2. ACETYLSALICYLIC ACID SRT [Concomitant]
  3. ISOSORBIDE DINITRATE [Concomitant]
  4. FAMOTIDINE [Concomitant]
  5. TRANDOLAPRIL (TRANDOLAPRIL) [Concomitant]
  6. DILTIAZEM HYDROCHLORIDE (DILITIAZEM HYDROCHLORIDE) [Concomitant]
  7. ISOSORBIDE DINITRATE [Concomitant]

REACTIONS (1)
  - GLYCOSYLATED HAEMOGLOBIN INCREASED [None]
